FAERS Safety Report 5880762-7 (Version None)
Quarter: 2008Q3

REPORT INFORMATION
  Report Type: 
  Country: None (occurrence: None)
  Receive Date: 20080912
  Receipt Date: 20080609
  Transmission Date: 20090109
  Serious: Yes (Death, Other)
  Sender: FDA-Public Use
  Company Number: US-ABBOTT-08P-163-0456093-00

PATIENT
  Sex: Female
  Weight: 50.848 kg

DRUGS (14)
  1. HUMIRA [Suspect]
     Indication: RHEUMATOID ARTHRITIS
     Route: 058
     Dates: start: 20040501
  2. CAPECITABINE [Concomitant]
     Indication: DRUG USE FOR UNKNOWN INDICATION
     Dosage: 500MG 2 TABS BID X7 DAYS REP  14 DAYS
     Route: 048
  3. VICODIN [Concomitant]
     Indication: PAIN
     Dosage: 5/500MG 1 TABLET Q 4-6 HOURS
     Route: 048
  4. PREDNISONE TAB [Concomitant]
     Indication: RHEUMATOID ARTHRITIS
     Route: 048
  5. QUINAPRIL [Concomitant]
     Indication: DRUG USE FOR UNKNOWN INDICATION
     Route: 048
  6. TESSALON [Concomitant]
     Indication: DRUG USE FOR UNKNOWN INDICATION
     Route: 048
  7. MECLIZINE [Concomitant]
     Indication: VERTIGO
     Route: 048
  8. CLONAZEPAM [Concomitant]
     Indication: DRUG USE FOR UNKNOWN INDICATION
     Route: 048
  9. METOCLOPRAMIDE [Concomitant]
     Indication: NAUSEA
     Route: 048
  10. METOCLOPRAMIDE [Concomitant]
     Indication: VOMITING
  11. METHOTREXATE [Concomitant]
     Indication: RHEUMATOID ARTHRITIS
     Route: 048
  12. QUINAPRIL [Concomitant]
     Indication: BLOOD PRESSURE
     Route: 048
  13. FOLIC ACID [Concomitant]
     Indication: PREMEDICATION
     Route: 048
  14. ACETAMINOPHEN [Concomitant]
     Indication: PAIN
     Route: 048

REACTIONS (8)
  - ASPARTATE AMINOTRANSFERASE INCREASED [None]
  - BLOOD ALKALINE PHOSPHATASE INCREASED [None]
  - BLOOD CREATININE INCREASED [None]
  - BLOOD GLUCOSE INCREASED [None]
  - COLON CANCER [None]
  - COLON CANCER METASTATIC [None]
  - HAEMATOCRIT DECREASED [None]
  - HAEMOGLOBIN DECREASED [None]
